FAERS Safety Report 5501241-2 (Version None)
Quarter: 2007Q4

REPORT INFORMATION
  Report Type: 
  Country: None (occurrence: None)
  Receive Date: 20071026
  Receipt Date: 20071017
  Transmission Date: 20080405
  Serious: Yes (Hospitalization, Other)
  Sender: FDA-Public Use
  Company Number: SPI200700691

PATIENT
  Age: 29 Year
  Sex: Female
  Weight: 97.5 kg

DRUGS (3)
  1. AMITIZA [Suspect]
     Indication: CONSTIPATION
     Dosage: 24 MCG, BID, ORAL
     Route: 048
     Dates: start: 20070501, end: 20071004
  2. AMITIZA [Suspect]
     Indication: GASTROINTESTINAL HYPOMOTILITY
     Dosage: 24 MCG, BID, ORAL
     Route: 048
     Dates: start: 20070501, end: 20071004
  3. STOOL SOFTENER (DOCUSATE SODIUM) [Concomitant]

REACTIONS (2)
  - DRUG EXPOSURE DURING PREGNANCY [None]
  - ECTOPIC PREGNANCY [None]
